FAERS Safety Report 5416077-0 (Version None)
Quarter: 2007Q3

REPORT INFORMATION
  Report Type: 
  Country: None (occurrence: None)
  Receive Date: 20070718
  Receipt Date: 20070313
  Transmission Date: 20080115
  Serious: Yes (Other)
  Sender: FDA-Public Use
  Company Number: 2007018222

PATIENT
  Age: 67 Year
  Sex: Female
  Weight: 81.2 kg

DRUGS (8)
  1. CELEBREX [Suspect]
     Indication: ARTHRITIS
     Dosage: 400 MG (200 MG, 2 IN 1 D)
     Dates: start: 20061201, end: 20070209
  2. CELEBREX [Suspect]
     Indication: INFLAMMATION
     Dosage: 400 MG (200 MG, 2 IN 1 D)
     Dates: start: 20061201, end: 20070209
  3. CELEBREX [Suspect]
     Indication: SWELLING
     Dosage: 400 MG (200 MG, 2 IN 1 D)
     Dates: start: 20061201, end: 20070209
  4. DIOVAN HCT [Concomitant]
  5. ZETIA [Concomitant]
  6. COUMADIN [Concomitant]
  7. TOPROL-XL [Concomitant]
  8. NEXIUM [Concomitant]

REACTIONS (1)
  - CHEST PAIN [None]
